FAERS Safety Report 16140713 (Version 1)
Quarter: 2019Q2

REPORT INFORMATION
  Report Type: Spontaneous
  Country: US (occurrence: US)
  Receive Date: 20190401
  Receipt Date: 20190401
  Transmission Date: 20190711
  Serious: No
  Sender: FDA-Public Use
  Company Number: US-009507513-1903USA008692

PATIENT
  Sex: Female

DRUGS (5)
  1. SINEMET [Suspect]
     Active Substance: CARBIDOPA\LEVODOPA
     Dosage: HALF OF PRESCRIBED DOSE
  2. BACLOFEN. [Suspect]
     Active Substance: BACLOFEN
     Indication: PARKINSON^S DISEASE
  3. SINEMET [Suspect]
     Active Substance: CARBIDOPA\LEVODOPA
     Indication: PARKINSON^S DISEASE
     Dosage: UNK
     Route: 048
  4. TOPIRAMATE. [Concomitant]
     Active Substance: TOPIRAMATE
     Dosage: 25 MILLIGRAM
  5. ARTANE [Suspect]
     Active Substance: TRIHEXYPHENIDYL HYDROCHLORIDE
     Indication: PARKINSON^S DISEASE

REACTIONS (10)
  - Movement disorder [Unknown]
  - Feeling abnormal [Unknown]
  - Ear discomfort [Unknown]
  - Intentional underdose [Unknown]
  - Bradyphrenia [Unknown]
  - Bradykinesia [Unknown]
  - Dystonia [Unknown]
  - Product availability issue [Unknown]
  - Intentional product use issue [Unknown]
  - Pain [Unknown]
